FAERS Safety Report 24075047 (Version 2)
Quarter: 2024Q3

REPORT INFORMATION
  Report Type: Spontaneous
  Country: GB (occurrence: GB)
  Receive Date: 20240710
  Receipt Date: 20240717
  Transmission Date: 20241016
  Serious: Yes (Other)
  Sender: MERCK
  Company Number: GB-009507513-2407GBR003394

PATIENT
  Age: 33 Year
  Sex: Female
  Weight: 71.5 kg

DRUGS (2)
  1. KEYTRUDA [Suspect]
     Active Substance: PEMBROLIZUMAB
     Indication: Triple negative breast cancer
     Dosage: 400 MILLIGRAM, EVERY 6 WEEKS
     Dates: start: 20240501, end: 20240501
  2. KEYTRUDA [Suspect]
     Active Substance: PEMBROLIZUMAB
     Dosage: 400 MILLIGRAM, EVERY 6 WEEKS
     Dates: start: 20240612, end: 20240612

REACTIONS (2)
  - Radiotherapy [Recovering/Resolving]
  - Skin reaction [Unknown]

NARRATIVE: CASE EVENT DATE: 20240605
